FAERS Safety Report 11013753 (Version 2)
Quarter: 2015Q2

REPORT INFORMATION
  Report Type: Spontaneous
  Country: US (occurrence: US)
  Receive Date: 20150412
  Receipt Date: 20150526
  Transmission Date: 20150821
  Serious: No
  Sender: FDA-Public Use
  Company Number: US-JNJFOC-20140316340

PATIENT
  Age: 66 Year
  Sex: Female
  Weight: 45.81 kg

DRUGS (5)
  1. PANCREASE MT [Suspect]
     Active Substance: PANCRELIPASE
     Indication: PANCREATIC DISORDER
     Dosage: 21000UNITS/CAPSULES/10500UNITS/TWO??CAPSULES WITH EACH MEAL/ORAL
     Route: 048
     Dates: start: 20140306, end: 20140307
  2. DILTIAZEM [Concomitant]
     Active Substance: DILTIAZEM
     Indication: HYPERTENSION
     Route: 048
  3. CLONAZEPAM. [Concomitant]
     Active Substance: CLONAZEPAM
     Indication: ANXIETY
     Dosage: 0.25MG/TABLET/0.5MG/HALF??TABLEET ONCE DAY/ORAL
     Route: 048
  4. CLONAZEPAM. [Concomitant]
     Active Substance: CLONAZEPAM
     Indication: SLEEP DISORDER THERAPY
     Dosage: 0.25MG/TABLET/0.5MG/HALF??TABLEET ONCE DAY/ORAL
     Route: 048
  5. CARVEDILOL. [Concomitant]
     Active Substance: CARVEDILOL
     Indication: HYPERTENSION
     Route: 048
     Dates: start: 20130219

REACTIONS (13)
  - Tremor [Recovering/Resolving]
  - Malaise [Recovered/Resolved]
  - Chest pain [Recovered/Resolved]
  - Feeling abnormal [Recovered/Resolved]
  - Nausea [Recovered/Resolved]
  - Chills [Recovered/Resolved]
  - Nervousness [Recovered/Resolved]
  - Abdominal pain upper [Recovered/Resolved]
  - Frequent bowel movements [Recovered/Resolved]
  - Emotional distress [Recovered/Resolved]
  - Blood pressure increased [Recovered/Resolved]
  - Dizziness [Recovered/Resolved]
  - Back pain [Recovered/Resolved]

NARRATIVE: CASE EVENT DATE: 20140306
